FAERS Safety Report 21054373 (Version 1)
Quarter: 2022Q3

REPORT INFORMATION
  Report Type: Spontaneous
  Country: CN (occurrence: CN)
  Receive Date: 20220707
  Receipt Date: 20220707
  Transmission Date: 20221026
  Serious: Yes (Disabling)
  Sender: FDA-Public Use
  Company Number: CN-FreseniusKabi-FK202209377

PATIENT
  Age: 79 Year
  Sex: Male
  Weight: 51.00 kg

DRUGS (4)
  1. INTRALIPID [Suspect]
     Active Substance: EGG PHOSPHOLIPIDS\GLYCERIN\SOYBEAN OIL
     Indication: Pneumonitis
     Dates: start: 20220623, end: 20220626
  2. AMIODARONE HYDROCHLORIDE [Suspect]
     Active Substance: AMIODARONE HYDROCHLORIDE
     Indication: Pneumonitis
     Dates: start: 20220626, end: 20220626
  3. DIFLUCAN [Suspect]
     Active Substance: FLUCONAZOLE
     Indication: Pneumonitis
     Route: 041
     Dates: start: 20220626, end: 20220627
  4. DEXTROSE [Concomitant]
     Active Substance: DEXTROSE
     Indication: Pneumonitis
     Dates: start: 20220626, end: 20220626

REACTIONS (1)
  - Liver injury [Unknown]

NARRATIVE: CASE EVENT DATE: 20220627
